FAERS Safety Report 25539368 (Version 1)
Quarter: 2025Q3

REPORT INFORMATION
  Report Type: Spontaneous
  Country: CA (occurrence: CA)
  Receive Date: 20250710
  Receipt Date: 20250710
  Transmission Date: 20251020
  Serious: Yes (Other)
  Sender: NORDIC PHARMA
  Company Number: CA-NORDICGR-063175

PATIENT
  Age: 73 Year
  Sex: Male
  Weight: 109 kg

DRUGS (6)
  1. METHOTREXATE SODIUM [Suspect]
     Active Substance: METHOTREXATE SODIUM
     Indication: Ankylosing spondylitis
  2. REMICADE [Concomitant]
     Active Substance: INFLIXIMAB
     Indication: Product used for unknown indication
     Route: 065
  3. HUMIRA [Concomitant]
     Active Substance: ADALIMUMAB
     Indication: Product used for unknown indication
     Route: 065
  4. METHOTREXATE SODIUM [Concomitant]
     Active Substance: METHOTREXATE SODIUM
     Indication: Ankylosing spondylitis
     Dosage: 1 EVERY 1 WEEKS
  5. ARAVA [Concomitant]
     Active Substance: LEFLUNOMIDE
     Indication: Product used for unknown indication
     Dosage: EVERY 1 DAYS
     Route: 065
  6. FOLIC ACID [Concomitant]
     Active Substance: FOLIC ACID
     Indication: Product used for unknown indication
     Dosage: 1 EVERY 1 WEEKS
     Route: 065

REACTIONS (2)
  - Limb injury [Unknown]
  - Product use in unapproved indication [Unknown]
